FAERS Safety Report 10890338 (Version 2)
Quarter: 2016Q3

REPORT INFORMATION
  Report Type: Spontaneous
  Country: JP (occurrence: JP)
  Receive Date: 20150305
  Receipt Date: 20160913
  Transmission Date: 20161109
  Serious: Yes (Other)
  Sender: FDA-Public Use
  Company Number: JP-AMGEN-JPNSP2015020409

PATIENT
  Age: 78 Year
  Sex: Female

DRUGS (1)
  1. GRAN [Suspect]
     Active Substance: FILGRASTIM
     Indication: CYCLIC NEUTROPENIA
     Dosage: 500 MG, UNK
     Route: 065

REACTIONS (2)
  - Polymyalgia rheumatica [Unknown]
  - Temporal arteritis [Recovering/Resolving]
